FAERS Safety Report 18105687 (Version 2)
Quarter: 2020Q3

REPORT INFORMATION
  Report Type: Spontaneous
  Country: US (occurrence: US)
  Receive Date: 20200803
  Receipt Date: 20200825
  Transmission Date: 20201103
  Serious: No
  Sender: FDA-Public Use
  Company Number: US-GILEAD-2020-0486580

PATIENT
  Sex: Male

DRUGS (2)
  1. SOFOSBUVIR;VELPATASVIR [Suspect]
     Active Substance: SOFOSBUVIR\VELPATASVIR
     Dosage: 1 DOSAGE FORM, QD
     Route: 048
     Dates: start: 20200724
  2. SOFOSBUVIR;VELPATASVIR [Suspect]
     Active Substance: SOFOSBUVIR\VELPATASVIR
     Indication: CHRONIC HEPATITIS C
     Dosage: 2 DOSAGE FORM, ONCE
     Route: 048

REACTIONS (12)
  - Depression [Unknown]
  - Headache [Unknown]
  - Feeling abnormal [Unknown]
  - Apathy [Unknown]
  - Dyspepsia [Unknown]
  - Abdominal pain upper [Unknown]
  - Abdominal discomfort [Unknown]
  - Pruritus [Unknown]
  - Intentional overdose [Recovered/Resolved]
  - Asthenia [Unknown]
  - Product dose omission issue [Recovered/Resolved]
  - Bacterial infection [Unknown]
